FAERS Safety Report 23906786 (Version 2)
Quarter: 2024Q2

REPORT INFORMATION
  Report Type: Spontaneous
  Country: US (occurrence: US)
  Receive Date: 20240528
  Receipt Date: 20240530
  Transmission Date: 20240716
  Serious: Yes (Other)
  Sender: FDA-Public Use
  Company Number: US-BRISTOL-MYERS SQUIBB COMPANY-2024-079155

PATIENT
  Age: 81 Year
  Sex: Male

DRUGS (1)
  1. LENALIDOMIDE [Suspect]
     Active Substance: LENALIDOMIDE
     Indication: Follicular lymphoma
     Dosage: TAKE 1 WHOLE CAPSULE BY MOUTH AT THE SAME TIME DAILY FOR 21 DAYS ON AND 7 DAYS OFF WITH WATER, WITH
     Route: 048
     Dates: start: 20240516

REACTIONS (6)
  - Fatigue [Not Recovered/Not Resolved]
  - Asthenia [Unknown]
  - Renal disorder [Unknown]
  - Hepatic cirrhosis [Unknown]
  - Lymphadenopathy [Unknown]
  - Visual impairment [Unknown]
